FAERS Safety Report 4820524-2 (Version None)
Quarter: 2005Q4

REPORT INFORMATION
  Report Type: 
  Country: None (occurrence: None)
  Receive Date: 20051104
  Receipt Date: 20051028
  Transmission Date: 20060501
  Serious: Yes (Other)
  Sender: FDA-Public Use
  Company Number: PHEH2005US11982

PATIENT
  Age: 8 Year
  Sex: Female

DRUGS (2)
  1. TRILEPTAL [Suspect]
     Dosage: 75 MG, BID
     Route: 048
  2. TRILEPTAL [Suspect]
     Dosage: 225 MG, QD
     Route: 048

REACTIONS (1)
  - BLOOD THYROID STIMULATING HORMONE ABNORMAL [None]
